FAERS Safety Report 10764869 (Version 1)
Quarter: 2015Q1

REPORT INFORMATION
  Report Type: Spontaneous
  Country: US (occurrence: None)
  Receive Date: 20150203
  Receipt Date: 20150203
  Transmission Date: 20150721
  Serious: Yes (Death, Disabling, Other)
  Sender: FDA-Public Use
  Company Number: US2015GSK011752

PATIENT
  Sex: Male

DRUGS (5)
  1. NORVIR [Concomitant]
     Active Substance: RITONAVIR
  2. PREZITA (DARUNAVIR) [Concomitant]
  3. TIVICAY [Suspect]
     Active Substance: DOLUTEGRAVIR SODIUM
     Indication: PRODUCT USED FOR UNKNOWN INDICATION
  4. LAMIVUDINE. [Concomitant]
     Active Substance: LAMIVUDINE
  5. TENOFOVIR [Concomitant]
     Active Substance: TENOFOVIR

REACTIONS (1)
  - Hepatic failure [None]
